FAERS Safety Report 4281505-3 (Version None)
Quarter: 2004Q1

REPORT INFORMATION
  Report Type: 
  Country: None (occurrence: None)
  Receive Date: 20040112
  Receipt Date: 20030617
  Transmission Date: 20041129
  Serious: Yes (Other)
  Sender: FDA-Public Use
  Company Number: US-JNJFOC-20030601980

PATIENT
  Age: 81 Year
  Sex: Male

DRUGS (6)
  1. REOPRO [Suspect]
     Indication: CATHETERISATION CARDIAC
     Dosage: 0.125 UG/KG/MIN, 1 IN 1 TOTAL
  2. METOPROPOL (METOPROLOL TARTRATE) [Concomitant]
  3. PERTONICS (ALL OTHER THERAPEUTIC PRODUCTS) [Concomitant]
  4. SIMVASTATIN [Concomitant]
  5. TERAZOSIN (TERAZOSIN) [Concomitant]
  6. TRAZADONE (TRAZODONE) [Concomitant]

REACTIONS (1)
  - PLATELET COUNT DECREASED [None]
